FAERS Safety Report 17678825 (Version 2)
Quarter: 2020Q2

REPORT INFORMATION
  Report Type: Spontaneous
  Country: US (occurrence: US)
  Receive Date: 20200417
  Receipt Date: 20200508
  Transmission Date: 20200714
  Serious: Yes (Hospitalization, Other)
  Sender: FDA-Public Use
  Company Number: US-AUROBINDO-AUR-APL-2020-018300

PATIENT
  Age: 69 Year
  Sex: Male

DRUGS (6)
  1. SILDENAFIL. [Suspect]
     Active Substance: SILDENAFIL
     Indication: ERECTILE DYSFUNCTION
     Dosage: 25 MILLIGRAM, TOTAL
     Route: 065
  2. TADALAFIL. [Suspect]
     Active Substance: TADALAFIL
     Indication: ERECTILE DYSFUNCTION
     Dosage: UNK
     Route: 065
  3. ACETYLSALICYLIC ACID [Concomitant]
     Active Substance: ASPIRIN
     Indication: BENIGN PROSTATIC HYPERPLASIA
     Dosage: 81 MILLIGRAM
     Route: 065
  4. MULTIVITAMINS [Concomitant]
     Active Substance: VITAMINS
     Indication: BENIGN PROSTATIC HYPERPLASIA
     Dosage: UNK
     Route: 065
  5. TAMSULOSIN [Concomitant]
     Active Substance: TAMSULOSIN
     Indication: BENIGN PROSTATIC HYPERPLASIA
     Dosage: UNK
     Route: 016
  6. ACETYLSALICYLIC ACID [Concomitant]
     Active Substance: ASPIRIN
     Indication: CORONARY ARTERY DISEASE

REACTIONS (13)
  - Disturbance in attention [Unknown]
  - Hypertension [Recovering/Resolving]
  - Cerebral haemorrhage [Unknown]
  - Executive dysfunction [Not Recovered/Not Resolved]
  - Headache [Recovered/Resolved]
  - Confusional state [Unknown]
  - Papilloedema [Recovering/Resolving]
  - Partial seizures [Unknown]
  - Oedema [Unknown]
  - Disease recurrence [Unknown]
  - Haemorrhage intracranial [Recovering/Resolving]
  - Cerebral amyloid angiopathy [Recovering/Resolving]
  - Cerebral small vessel ischaemic disease [Recovering/Resolving]
